FAERS Safety Report 5412361-5 (Version None)
Quarter: 2007Q3

REPORT INFORMATION
  Report Type: 
  Country: None (occurrence: None)
  Receive Date: 20070713
  Receipt Date: 20070423
  Transmission Date: 20080115
  Serious: No
  Sender: FDA-Public Use
  Company Number: 2007SP001461

PATIENT
  Age: 55 Year
  Sex: Male
  Weight: 77.1115 kg

DRUGS (3)
  1. LUNESTA [Suspect]
     Indication: INSOMNIA
     Dosage: 3 MG; ORAL
     Route: 048
     Dates: start: 20070420
  2. KLONOPIN [Concomitant]
  3. PAXIL [Concomitant]

REACTIONS (3)
  - DYSGEUSIA [None]
  - INITIAL INSOMNIA [None]
  - VISION BLURRED [None]
